FAERS Safety Report 24683668 (Version 1)
Quarter: 2024Q4

REPORT INFORMATION
  Report Type: Spontaneous
  Country: BE (occurrence: BE)
  Receive Date: 20241202
  Receipt Date: 20241202
  Transmission Date: 20250115
  Serious: Yes (Other)
  Sender: STRIDES
  Company Number: BE-STRIDES ARCOLAB LIMITED-2024SP015669

PATIENT
  Age: 21 Year
  Sex: Female

DRUGS (5)
  1. METHYLDOPA [Suspect]
     Active Substance: METHYLDOPA
     Indication: Hypertension
     Dosage: 250 MILLIGRAM, OD
     Route: 065
  2. LABETALOL [Suspect]
     Active Substance: LABETALOL
     Indication: Hypertension
     Dosage: 100 MILLIGRAM, TID
     Route: 065
  3. LABETALOL [Suspect]
     Active Substance: LABETALOL
     Dosage: 200 MILLIGRAM, TID (DOSE INCREASED)
     Route: 065
  4. ASPIRIN [Suspect]
     Active Substance: ASPIRIN
     Indication: Hypertension
     Dosage: 80 MILLIGRAM, OD
     Route: 065
  5. NIFEDIPINE [Suspect]
     Active Substance: NIFEDIPINE
     Indication: Hypertension
     Dosage: 30 MILLIGRAM, OD
     Route: 065

REACTIONS (4)
  - Premature delivery [Unknown]
  - Drug ineffective [Unknown]
  - Hypertension [Unknown]
  - Maternal exposure during pregnancy [Unknown]
